FAERS Safety Report 18533468 (Version 1)
Quarter: 2020Q4

REPORT INFORMATION
  Report Type: Spontaneous
  Country: US (occurrence: US)
  Receive Date: 20201120
  Receipt Date: 20201120
  Transmission Date: 20210114
  Serious: Yes (Death, Life-Threatening, Hospitalization, Disabling)
  Sender: FDA-Public Use
  Company Number: None

PATIENT
  Age: 75 Year
  Sex: Male
  Weight: 61.1 kg

DRUGS (1)
  1. APIXABAN [Suspect]
     Active Substance: APIXABAN
     Indication: ATRIAL FLUTTER
     Route: 048

REACTIONS (5)
  - Facial paralysis [None]
  - Hospice care [None]
  - Anal incontinence [None]
  - Cerebral haemorrhage [None]
  - Urinary incontinence [None]

NARRATIVE: CASE EVENT DATE: 20201016
